FAERS Safety Report 15901221 (Version 1)
Quarter: 2019Q1

REPORT INFORMATION
  Report Type: Spontaneous
  Country: US (occurrence: US)
  Receive Date: 20190201
  Receipt Date: 20190201
  Transmission Date: 20190417
  Serious: Yes (Other)
  Sender: FDA-Public Use
  Company Number: US-PFIZER INC-2019045728

PATIENT
  Sex: Male
  Weight: 112 kg

DRUGS (3)
  1. LYRICA [Suspect]
     Active Substance: PREGABALIN
     Indication: DIABETIC NEUROPATHY
     Dosage: 300 MG, 2X/DAY
     Route: 048
  2. LYRICA [Suspect]
     Active Substance: PREGABALIN
     Indication: NERVE INJURY
     Dosage: 200 MG, 3X/DAY
     Route: 048
     Dates: start: 2011
  3. LYRICA [Suspect]
     Active Substance: PREGABALIN
     Indication: MITOCHONDRIAL MYOPATHY

REACTIONS (8)
  - Thrombosis [Unknown]
  - Internal haemorrhage [Unknown]
  - Volume blood decreased [Unknown]
  - Loss of consciousness [Unknown]
  - Fall [Unknown]
  - Post procedural complication [Unknown]
  - Cardiac valve disease [Unknown]
  - Head injury [Unknown]
